FAERS Safety Report 4940122-X (Version None)
Quarter: 2006Q1

REPORT INFORMATION
  Report Type: 
  Country: None (occurrence: None)
  Receive Date: 20060310
  Receipt Date: 20060301
  Transmission Date: 20060701
  Serious: Yes (Other)
  Sender: FDA-Public Use
  Company Number: US-ROCHE-438741

PATIENT

DRUGS (1)
  1. CELLCEPT [Suspect]
     Indication: AUTOIMMUNE DISORDER
     Route: 065

REACTIONS (1)
  - PNEUMONITIS [None]
